FAERS Safety Report 7824156-3 (Version None)
Quarter: 2011Q4

REPORT INFORMATION
  Report Type: 
  Country: None (occurrence: None)
  Receive Date: 20111019
  Receipt Date: 20111007
  Transmission Date: 20120403
  Serious: Yes (Hospitalization)
  Sender: FDA-Public Use
  Company Number: JP-ACTELION-A-CH2011-50788

PATIENT
  Sex: Male
  Weight: 64 kg

DRUGS (14)
  1. TRACLEER [Suspect]
     Dosage: 62.5 MG, BID
     Route: 048
     Dates: start: 20100401, end: 20100407
  2. FUDOSTEINE [Concomitant]
  3. PREDNISOLONE [Suspect]
     Dosage: UNK , UNK
  4. TRACLEER [Suspect]
     Indication: PULMONARY ARTERIAL HYPERTENSION
     Dosage: 62.5 MG, BID
     Route: 048
     Dates: start: 20100128, end: 20100225
  5. MAGNESIUM OXIDE [Concomitant]
  6. TRACLEER [Suspect]
     Dosage: 125 MG, BID
     Route: 048
     Dates: start: 20100408
  7. REBAMIPIDE [Concomitant]
  8. TRACLEER [Suspect]
     Dosage: 125 MG, BID
     Route: 048
     Dates: start: 20100226, end: 20100322
  9. AMBROXOL HYDROCHLORIDE [Concomitant]
  10. SULFAMETHOXAZOLE AND TRIMETHOPRIM [Concomitant]
  11. INSULIN HUMAN [Concomitant]
  12. INSULIN LISPRO [Concomitant]
  13. GLUCOS [Concomitant]
  14. OXYGEN [Concomitant]

REACTIONS (4)
  - CARDIAC FAILURE [None]
  - RESPIRATORY DISORDER [None]
  - GAMMA-GLUTAMYLTRANSFERASE INCREASED [None]
  - WHITE BLOOD CELL COUNT INCREASED [None]
